FAERS Safety Report 7670798-8 (Version None)
Quarter: 2011Q3

REPORT INFORMATION
  Report Type: 
  Country: None (occurrence: None)
  Receive Date: 20110809
  Receipt Date: 20110804
  Transmission Date: 20111222
  Serious: Yes (Hospitalization)
  Sender: FDA-Public Use
  Company Number: US-TEVA-294899USA

PATIENT
  Sex: Female

DRUGS (3)
  1. GABAPENTIN [Concomitant]
     Route: 048
  2. COPAXONE [Suspect]
     Indication: MULTIPLE SCLEROSIS
     Route: 058
     Dates: start: 20070101
  3. DEXTROAMPHETAMINE SULFATE [Concomitant]
     Dosage: 10 MILLIGRAM;
     Route: 048

REACTIONS (2)
  - ASTHENIA [None]
  - PARAESTHESIA [None]
